FAERS Safety Report 17202851 (Version 1)
Quarter: 2019Q4

REPORT INFORMATION
  Report Type: Spontaneous
  Country: US (occurrence: US)
  Receive Date: 20191226
  Receipt Date: 20191226
  Transmission Date: 20200122
  Serious: No
  Sender: FDA-Public Use
  Company Number: US-PFIZER INC-2019481288

PATIENT

DRUGS (1)
  1. DICLOFENAC EPOLAMINE [Suspect]
     Active Substance: DICLOFENAC EPOLAMINE
     Dosage: UNK
     Route: 061

REACTIONS (4)
  - Contusion [Unknown]
  - Skin discolouration [Unknown]
  - Skin burning sensation [Unknown]
  - Product adhesion issue [Unknown]
